FAERS Safety Report 19249282 (Version 1)
Quarter: 2021Q2

REPORT INFORMATION
  Report Type: Spontaneous
  Country: PL (occurrence: PL)
  Receive Date: 20210512
  Receipt Date: 20210512
  Transmission Date: 20210717
  Serious: Yes (Life-Threatening, Hospitalization, Other)
  Sender: FDA-Public Use
  Company Number: PL-LUPIN PHARMACEUTICALS INC.-2021-06761

PATIENT
  Age: 35 Year
  Sex: Male

DRUGS (1)
  1. MORPHINE [Suspect]
     Active Substance: MORPHINE
     Indication: PRODUCT USED FOR UNKNOWN INDICATION
     Dosage: 120 DOSAGE FORM, TAKEN 120 TABLETS (20 MG OF MORPHINE SULPHATE), DISSOLVED IT IN 0.5L OF STILL WATER
     Route: 042

REACTIONS (8)
  - Suicide attempt [Unknown]
  - Cardiogenic shock [Recovering/Resolving]
  - Coma [Recovering/Resolving]
  - Cardiac failure congestive [Recovering/Resolving]
  - Overdose [Unknown]
  - Drug abuse [Unknown]
  - Acute respiratory failure [Recovering/Resolving]
  - Somnolence [Recovering/Resolving]
